FAERS Safety Report 9144202 (Version 2)
Quarter: 2013Q2

REPORT INFORMATION
  Report Type: Spontaneous
  Country: US (occurrence: US)
  Receive Date: 20130306
  Receipt Date: 20130424
  Transmission Date: 20140414
  Serious: Yes (Death)
  Sender: FDA-Public Use
  Company Number: US-ELI_LILLY_AND_COMPANY-US201202001762

PATIENT
  Age: 90 Year
  Sex: Female

DRUGS (5)
  1. FORTEO [Suspect]
     Indication: OSTEOPOROSIS
     Dosage: 20 UG, QD
     Route: 065
     Dates: start: 201106, end: 20130207
  2. LISINOPRIL [Concomitant]
     Indication: HYPERTENSION
  3. ZANTAC [Concomitant]
     Indication: GASTRIC DISORDER
  4. LORTAB [Concomitant]
     Indication: ARTHRALGIA
  5. ALEVE [Concomitant]
     Indication: ARTHRALGIA

REACTIONS (8)
  - Aortic aneurysm rupture [Fatal]
  - Hand fracture [Unknown]
  - Hand fracture [Unknown]
  - Upper limb fracture [Unknown]
  - Fall [Recovered/Resolved]
  - Fall [Recovered/Resolved]
  - Contusion [Unknown]
  - Contusion [Unknown]
